FAERS Safety Report 6794163-0 (Version None)
Quarter: 2010Q2

REPORT INFORMATION
  Report Type: 
  Country: None (occurrence: None)
  Receive Date: 20100624
  Receipt Date: 20080912
  Transmission Date: 20101027
  Serious: No
  Sender: FDA-Public Use
  Company Number: US-PFIZER INC-ENC200800178

PATIENT

DRUGS (1)
  1. ARGATROBAN [Suspect]
     Route: 065
     Dates: start: 20080901

REACTIONS (1)
  - COAGULATION TIME ABNORMAL [None]
